FAERS Safety Report 22306802 (Version 2)
Quarter: 2024Q4

REPORT INFORMATION
  Report Type: Spontaneous
  Country: US (occurrence: US)
  Receive Date: 20230511
  Receipt Date: 20241217
  Transmission Date: 20250115
  Serious: No
  Sender: LUPIN
  Company Number: US-LUPIN PHARMACEUTICALS INC.-2023-03548

PATIENT

DRUGS (1)
  1. ALBUTEROL SULFATE [Suspect]
     Active Substance: ALBUTEROL SULFATE
     Indication: Asthma
     Dosage: UNK, 2 PUFFS EVERY 4 HOURS AS NEEDED
     Dates: start: 20230301

REACTIONS (3)
  - Wrong technique in product usage process [Unknown]
  - Product preparation error [Unknown]
  - No adverse event [Unknown]
